FAERS Safety Report 9393912 (Version 1)
Quarter: 2013Q3

REPORT INFORMATION
  Report Type: Spontaneous
  Country: DE (occurrence: None)
  Receive Date: 20130705
  Receipt Date: 20130705
  Transmission Date: 20140515
  Serious: Yes (Other)
  Sender: FDA-Public Use
  Company Number: 2013DE0265

PATIENT
  Age: 33 Year
  Sex: Female

DRUGS (1)
  1. KINERET [Suspect]
     Route: 058

REACTIONS (4)
  - Circulatory collapse [None]
  - Anaphylactic reaction [None]
  - No therapeutic response [None]
  - Incorrect product storage [None]
